FAERS Safety Report 14932027 (Version 1)
Quarter: 2018Q2

REPORT INFORMATION
  Report Type: Spontaneous
  Country: BE (occurrence: BE)
  Receive Date: 20180524
  Receipt Date: 20180524
  Transmission Date: 20180711
  Serious: Yes (Death, Hospitalization)
  Sender: FDA-Public Use
  Company Number: BE-SUN PHARMACEUTICAL INDUSTRIES LTD-2018R1-173287

PATIENT
  Age: 81 Year
  Sex: Female

DRUGS (11)
  1. HYDRALAZINE 25MG TABLET [Concomitant]
     Indication: PRODUCT USED FOR UNKNOWN INDICATION
     Dosage: 75 MG, DAILY (TRAITEMENT CHRONIQUE)
     Route: 048
  2. TENORMIN 25 MG [Concomitant]
     Indication: PRODUCT USED FOR UNKNOWN INDICATION
     Dosage: 32.5 MG, DAILY (TRAITEMENT CHRONIQUE (0.5 CO LE MATIN = 1 CO LE SOIR))
     Route: 048
  3. LASIX [Suspect]
     Active Substance: FUROSEMIDE
     Indication: PRODUCT USED FOR UNKNOWN INDICATION
     Dosage: 80 MG, DAILY (TRAITEMENT CHRONIQUE)
     Route: 048
  4. ASAFLOW 80 MG [Concomitant]
     Indication: PRODUCT USED FOR UNKNOWN INDICATION
     Dosage: 80 MG, DAILY (TRAITEMENT CHRONIQUE)
     Route: 048
  5. MOXONIDINE .4 MG [Concomitant]
     Indication: PRODUCT USED FOR UNKNOWN INDICATION
     Dosage: TRAITEMENT CHRONIQUE
     Route: 048
  6. ALLOPURINOL 100MG [Concomitant]
     Active Substance: ALLOPURINOL
     Indication: PRODUCT USED FOR UNKNOWN INDICATION
     Dosage: 100 MG, DAILY (TRAITEMENT CHRONIQUE)
     Route: 048
  7. ERYTHROFORTE 500 [Suspect]
     Active Substance: ERYTHROMYCIN ETHYLSUCCINATE
     Indication: PRODUCT USED FOR UNKNOWN INDICATION
     Dosage: 1500 MG, DAILY
     Route: 048
     Dates: start: 20180102, end: 20180109
  8. CORDARONE [Suspect]
     Active Substance: AMIODARONE HYDROCHLORIDE
     Indication: PRODUCT USED FOR UNKNOWN INDICATION
     Dosage: 100 MG, DAILY (TRAITEMENT CHRONIQUE)
     Route: 048
  9. OMEPRAZOL 40 MG [Suspect]
     Active Substance: OMEPRAZOLE
     Indication: PRODUCT USED FOR UNKNOWN INDICATION
     Dosage: 40 MG, DAILY (TRAITEMENT CHRONIQUE)
     Route: 048
  10. SERTRALINE [Suspect]
     Active Substance: SERTRALINE HYDROCHLORIDE
     Indication: DEPRESSION
     Dosage: 50 MG, DAILY (TRAITEMENT CHRONIQUE  DOSE DEGRESSIVE POUR ETRE REMPLACE PAR MIRTAZAPINE)
     Route: 048
  11. MIRTAZAPINE 15MG [Suspect]
     Active Substance: MIRTAZAPINE
     Indication: DEPRESSION
     Dosage: 15 MG, DAILY (J^IGNORE SI LE TRAITEMENT ETAIT DEJA DEBUTE LORS DE L^APPARITION DES EFFETS II)
     Route: 048

REACTIONS (2)
  - Electrocardiogram QT prolonged [Fatal]
  - Drug interaction [Fatal]
